FAERS Safety Report 17622806 (Version 1)
Quarter: 2020Q2

REPORT INFORMATION
  Report Type: Spontaneous
  Country: US (occurrence: US)
  Receive Date: 20200403
  Receipt Date: 20200403
  Transmission Date: 20200713
  Serious: No
  Sender: FDA-Public Use
  Company Number: US-PFIZER INC-2020135879

PATIENT
  Age: 66 Year
  Sex: Male

DRUGS (3)
  1. INLYTA [Suspect]
     Active Substance: AXITINIB
     Dosage: 3 MG, TWICE A DAY
  2. INLYTA [Suspect]
     Active Substance: AXITINIB
     Dosage: 5 MG, TWICE A DAY
  3. BAVENCIO [Concomitant]
     Active Substance: AVELUMAB
     Dosage: UNK
     Route: 042

REACTIONS (3)
  - Hypertension [Unknown]
  - Genital lesion [Unknown]
  - Malaise [Unknown]

NARRATIVE: CASE EVENT DATE: 20200325
